APPROVED DRUG PRODUCT: NIFEDIPINE
Active Ingredient: NIFEDIPINE
Strength: 90MG
Dosage Form/Route: TABLET, EXTENDED RELEASE;ORAL
Application: A090649 | Product #003
Applicant: AUROBINDO PHARMA USA INC
Approved: Jun 21, 2010 | RLD: No | RS: No | Type: DISCN